FAERS Safety Report 6902591-5 (Version None)
Quarter: 2010Q3

REPORT INFORMATION
  Report Type: 
  Country: None (occurrence: None)
  Receive Date: 20100803
  Receipt Date: 20080529
  Transmission Date: 20110219
  Serious: No
  Sender: FDA-Public Use
  Company Number: US-PFIZER INC-2008046086

PATIENT
  Sex: Female
  Weight: 104.5 kg

DRUGS (6)
  1. LYRICA [Suspect]
     Indication: FIBROMYALGIA
     Route: 048
     Dates: start: 20070802, end: 20070809
  2. WELLBUTRIN [Concomitant]
     Indication: DEPRESSION
     Route: 048
     Dates: start: 20020101
  3. NEXIUM [Concomitant]
     Indication: GASTRIC DISORDER
     Route: 048
  4. AMBIEN [Concomitant]
     Route: 048
  5. VICODIN [Concomitant]
     Indication: PAIN
     Route: 048
     Dates: start: 20000101
  6. CORTISONE [Concomitant]
     Indication: ADDISON'S DISEASE
     Route: 048

REACTIONS (1)
  - OEDEMA PERIPHERAL [None]
